FAERS Safety Report 14418442 (Version 3)
Quarter: 2020Q3

REPORT INFORMATION
  Report Type: Spontaneous
  Country: US (occurrence: US)
  Receive Date: 20180122
  Receipt Date: 20200929
  Transmission Date: 20201102
  Serious: No
  Sender: FDA-Public Use
  Company Number: US-INTERCEPT-PMOCA2017001359

PATIENT

DRUGS (11)
  1. NIACIN. [Concomitant]
     Active Substance: NIACIN
  2. ZYRTEC [Concomitant]
     Active Substance: CETIRIZINE HYDROCHLORIDE
     Indication: PRURITUS
  3. VITAMIN A+D GRX OINTMENT [Concomitant]
  4. NEXIUM [Concomitant]
     Active Substance: ESOMEPRAZOLE MAGNESIUM
     Indication: GASTROOESOPHAGEAL REFLUX DISEASE
  5. OCALIVA [Suspect]
     Active Substance: OBETICHOLIC ACID
     Indication: PRODUCT USE IN UNAPPROVED INDICATION
     Dosage: 5 MG, QD
     Route: 048
     Dates: start: 201708
  6. URSODIOL. [Concomitant]
     Active Substance: URSODIOL
     Indication: VANISHING BILE DUCT SYNDROME
     Dosage: 300 MG, TID
  7. ZORTRESS [Concomitant]
     Active Substance: EVEROLIMUS
  8. MULTIVITAMINES WITH IRON [Concomitant]
  9. ASPIRIN. [Concomitant]
     Active Substance: ASPIRIN
     Indication: PROPHYLAXIS
  10. ASCRIPTIN [Concomitant]
     Active Substance: ASPIRIN
  11. CIPRO [Concomitant]
     Active Substance: CIPROFLOXACIN HYDROCHLORIDE

REACTIONS (3)
  - Alopecia [Recovered/Resolved]
  - Product dose omission issue [Recovered/Resolved]
  - Off label use [Not Recovered/Not Resolved]

NARRATIVE: CASE EVENT DATE: 201708
